FAERS Safety Report 23102095 (Version 1)
Quarter: 2023Q4

REPORT INFORMATION
  Report Type: Spontaneous
  Country: FR (occurrence: None)
  Receive Date: 20231025
  Receipt Date: 20231025
  Transmission Date: 20240110
  Serious: Yes (Other)
  Sender: FDA-Public Use
  Company Number: FR-Orion Corporation ORION PHARMA-TREX2023-0246

PATIENT
  Age: 70 Year
  Sex: Female

DRUGS (2)
  1. METHOTREXATE SODIUM [Suspect]
     Active Substance: METHOTREXATE SODIUM
     Indication: Psoriatic arthropathy
     Dosage: 10 TO 15 MG/WEEK?STRENGTH: 10 MG
     Dates: start: 202002, end: 202307
  2. HULIO [Concomitant]
     Active Substance: ADALIMUMAB-FKJP
     Indication: Psoriatic arthropathy
     Dates: start: 202008, end: 202307

REACTIONS (1)
  - Neuroendocrine carcinoma of the skin [Recovering/Resolving]

NARRATIVE: CASE EVENT DATE: 20230701
